FAERS Safety Report 5489187-X (Version None)
Quarter: 2007Q4

REPORT INFORMATION
  Report Type: 
  Country: None (occurrence: None)
  Receive Date: 20071016
  Receipt Date: 20070929
  Transmission Date: 20080405
  Serious: Yes (Other)
  Sender: FDA-Public Use
  Company Number: 07-002004

PATIENT
  Age: 2 Year
  Sex: Female
  Weight: 13.2 kg

DRUGS (1)
  1. LOESTRIN 24 FE [Suspect]
     Dosage: 20/1000UG

REACTIONS (2)
  - ACCIDENTAL OVERDOSE [None]
  - VOMITING [None]
